FAERS Safety Report 22252719 (Version 1)
Quarter: 2023Q2

REPORT INFORMATION
  Report Type: Spontaneous
  Country: US (occurrence: None)
  Receive Date: 20230426
  Receipt Date: 20230426
  Transmission Date: 20230721
  Serious: No
  Sender: FDA-Public Use
  Company Number: US-Ultragenyx Pharmaceutical Inc.-US-UGNX-23-00152

PATIENT
  Sex: Female
  Weight: 21.2 kg

DRUGS (2)
  1. DOJOLVI [Suspect]
     Active Substance: TRIHEPTANOIN
     Indication: Pyruvate carboxylase deficiency
     Dosage: 6ML FOUR TIMES DAILY VIA G-TUBE
     Dates: start: 20220601
  2. DOJOLVI [Suspect]
     Active Substance: TRIHEPTANOIN

REACTIONS (3)
  - Diarrhoea [Unknown]
  - Off label use [Unknown]
  - Intentional product misuse [Unknown]
